FAERS Safety Report 12418514 (Version 1)
Quarter: 2016Q2

REPORT INFORMATION
  Report Type: Spontaneous
  Country: US (occurrence: US)
  Receive Date: 20160531
  Receipt Date: 20160531
  Transmission Date: 20160815
  Serious: No
  Sender: FDA-Public Use
  Company Number: US-BRISTOL-MYERS SQUIBB COMPANY-BMS-2016-041457

PATIENT
  Sex: Female
  Weight: 44.44 kg

DRUGS (1)
  1. OPDIVO [Suspect]
     Active Substance: NIVOLUMAB
     Indication: LUNG NEOPLASM MALIGNANT
     Dosage: UNK, Q2WK
     Route: 042

REACTIONS (6)
  - Decreased appetite [Unknown]
  - Somnolence [Unknown]
  - Constipation [Unknown]
  - Skin disorder [Unknown]
  - Fatigue [Unknown]
  - Pain [Unknown]
